FAERS Safety Report 8023198-5 (Version None)
Quarter: 2012Q1

REPORT INFORMATION
  Report Type: 
  Country: None (occurrence: None)
  Receive Date: 20120104
  Receipt Date: 20111230
  Transmission Date: 20120608
  Serious: Yes (Death)
  Sender: FDA-Public Use
  Company Number: US-CELGENEUS-163-21880-11123878

PATIENT
  Sex: Male

DRUGS (10)
  1. AMBIEN [Concomitant]
     Route: 048
  2. ERGOCALCIFEROL [Concomitant]
     Dosage: 50,000 UNIT
     Route: 048
  3. AVODART [Concomitant]
     Route: 048
  4. MEGACE [Concomitant]
     Route: 048
  5. ACYCLOVIR [Concomitant]
     Route: 048
  6. IBUPROFEN (ADVIL) [Concomitant]
     Route: 048
  7. NOVOLOG [Concomitant]
     Route: 050
  8. OXYCONTIN [Concomitant]
     Dosage: 20 MILLIGRAM
     Route: 048
  9. REVLIMID [Suspect]
     Indication: LYMPHOMA
     Dosage: 5 MILLIGRAM
     Route: 048
     Dates: start: 20110212
  10. OXYCODONE HCL [Concomitant]
     Dosage: 10 MILLIGRAM
     Route: 048

REACTIONS (1)
  - DEATH [None]
